FAERS Safety Report 9109540 (Version 1)
Quarter: 2013Q1

REPORT INFORMATION
  Report Type: Spontaneous
  Country: FR (occurrence: FR)
  Receive Date: 20130222
  Receipt Date: 20130222
  Transmission Date: 20140127
  Serious: Yes (Life-Threatening)
  Sender: FDA-Public Use
  Company Number: FR-B.I. PHARMACEUTICALS,INC./RIDGEFIELD-2013-FF-00502FF

PATIENT
  Age: 49 Year
  Sex: Male

DRUGS (9)
  1. PRADAXA [Suspect]
     Indication: PROPHYLAXIS
     Dosage: 150 MG
     Route: 048
     Dates: start: 201207, end: 20121011
  2. CORDARONE [Suspect]
     Indication: ATRIAL FIBRILLATION
     Dosage: 2 ANZ
     Route: 048
  3. ALDACTONE [Concomitant]
     Indication: HYPERTENSION
     Dosage: 25 MG
     Route: 048
  4. RAMIPRIL [Concomitant]
     Indication: HYPERTENSION
     Dosage: 5 MG
     Route: 048
  5. JANUVIA [Concomitant]
     Indication: TYPE 2 DIABETES MELLITUS
     Dosage: 100 MG
     Route: 048
  6. AMAREL [Concomitant]
     Indication: TYPE 2 DIABETES MELLITUS
     Dosage: 10 MG
     Route: 048
  7. CARDENSIEL [Concomitant]
     Indication: CARDIAC FAILURE
     Dosage: 2.5 MG
     Route: 048
  8. KALEORID [Concomitant]
     Indication: HYPOKALAEMIA
     Dosage: 1000 MG
     Route: 048
     Dates: end: 20121119
  9. LASILIX [Concomitant]
     Indication: RENAL FAILURE
     Dosage: 40 MG
     Route: 048

REACTIONS (4)
  - Rectal haemorrhage [Recovered/Resolved]
  - Haematemesis [Recovered/Resolved]
  - Back pain [Recovered/Resolved]
  - Hypotension [Recovered/Resolved]
